FAERS Safety Report 19552397 (Version 2)
Quarter: 2021Q3

REPORT INFORMATION
  Report Type: Report from Study
  Country: US (occurrence: US)
  Receive Date: 20210715
  Receipt Date: 20210826
  Transmission Date: 20211014
  Serious: Yes (Hospitalization)
  Sender: FDA-Public Use
  Company Number: US-EISAI MEDICAL RESEARCH-EC-2021-095911

PATIENT
  Age: 53 Year
  Sex: Female
  Weight: 100 kg

DRUGS (22)
  1. LOVENOX [Concomitant]
     Active Substance: ENOXAPARIN SODIUM
     Dosage: 150 MG/ML
  2. CORTEF [Concomitant]
     Active Substance: HYDROCORTISONE
  3. COZAAR [Concomitant]
     Active Substance: LOSARTAN POTASSIUM
  4. LENVIMA [Suspect]
     Active Substance: LENVATINIB
     Indication: RENAL CANCER
     Route: 048
     Dates: start: 20190315
  5. LENVIMA [Suspect]
     Active Substance: LENVATINIB
     Indication: BUDD-CHIARI SYNDROME
  6. HYDROCORTISONE. [Concomitant]
     Active Substance: HYDROCORTISONE
  7. NICODERM CQ [Concomitant]
     Active Substance: NICOTINE
  8. VITAMIN D3 [Concomitant]
     Active Substance: CHOLECALCIFEROL
  9. LIDODERM [Concomitant]
     Active Substance: LIDOCAINE
  10. NORVASC [Concomitant]
     Active Substance: AMLODIPINE BESYLATE
  11. DHEA [Concomitant]
     Active Substance: PRASTERONE
  12. LOMOTIL [Concomitant]
     Active Substance: ATROPINE SULFATE\DIPHENOXYLATE HYDROCHLORIDE
     Dosage: 2.5?0.025 MG
  13. LAMICTAL [Concomitant]
     Active Substance: LAMOTRIGINE
  14. SEROQUEL [Concomitant]
     Active Substance: QUETIAPINE FUMARATE
  15. KENALOG [Concomitant]
     Active Substance: TRIAMCINOLONE ACETONIDE
  16. AFINITOR [Concomitant]
     Active Substance: EVEROLIMUS
  17. ROBITUSSIN (GUAIFENESIN) [Concomitant]
     Active Substance: GUAIFENESIN
     Dosage: 100?10 MG/5ML
  18. PRISTIQ EXTENDED?RELEASE [Concomitant]
     Active Substance: DESVENLAFAXINE SUCCINATE
  19. SYNTHROID [Concomitant]
     Active Substance: LEVOTHYROXINE SODIUM
  20. TESSALON [Concomitant]
     Active Substance: BENZONATATE
  21. FLONASE [Concomitant]
     Active Substance: FLUTICASONE PROPIONATE
  22. ZOFRAN [Concomitant]
     Active Substance: ONDANSETRON HYDROCHLORIDE

REACTIONS (6)
  - Vomiting [Unknown]
  - Adrenal insufficiency [Recovered/Resolved]
  - Dysphonia [Unknown]
  - Hypokalaemia [Unknown]
  - Nausea [Unknown]
  - Hypertension [Recovered/Resolved]

NARRATIVE: CASE EVENT DATE: 20210628
